FAERS Safety Report 15011915 (Version 1)
Quarter: 2018Q2

REPORT INFORMATION
  Report Type: Spontaneous
  Country: US (occurrence: US)
  Receive Date: 20180529
  Receipt Date: 20180529
  Transmission Date: 20180711
  Serious: No
  Sender: FDA-Public Use
  Company Number: None

PATIENT
  Age: 28 Year
  Sex: Male
  Weight: 81 kg

DRUGS (6)
  1. SEROQUEL [Concomitant]
     Active Substance: QUETIAPINE FUMARATE
  2. FISH OIL [Concomitant]
     Active Substance: FISH OIL
  3. MAGNESIUM [Concomitant]
     Active Substance: MAGNESIUM
  4. COQ10 [Concomitant]
     Active Substance: UBIDECARENONE
  5. ADDERALL [Suspect]
     Active Substance: AMPHETAMINE ASPARTATE\AMPHETAMINE SULFATE\DEXTROAMPHETAMINE SACCHARATE\DEXTROAMPHETAMINE SULFATE
     Indication: ATTENTION DEFICIT/HYPERACTIVITY DISORDER
     Route: 048
  6. MULTIVITAMIN [Concomitant]
     Active Substance: VITAMINS

REACTIONS (11)
  - Product substitution issue [None]
  - Nausea [None]
  - Chest pain [None]
  - Therapeutic response decreased [None]
  - Abdominal pain upper [None]
  - Dissociative disorder [None]
  - Speech disorder [None]
  - Disturbance in attention [None]
  - Anxiety [None]
  - Depression [None]
  - Memory impairment [None]

NARRATIVE: CASE EVENT DATE: 20180529
